FAERS Safety Report 19057340 (Version 1)
Quarter: 2021Q1

REPORT INFORMATION
  Report Type: Spontaneous
  Country: US (occurrence: US)
  Receive Date: 20210325
  Receipt Date: 20210325
  Transmission Date: 20210420
  Serious: No
  Sender: FDA-Public Use
  Company Number: US-BIOGEN-2021BI00993428

PATIENT
  Sex: Female

DRUGS (19)
  1. LUVOX [Concomitant]
     Active Substance: FLUVOXAMINE MALEATE
     Route: 065
  2. BACLOFEN. [Concomitant]
     Active Substance: BACLOFEN
     Route: 065
  3. VENTOLIN [Concomitant]
     Active Substance: ALBUTEROL SULFATE
     Route: 065
  4. COTACE [Concomitant]
     Route: 065
  5. DULOXETIN [Concomitant]
     Active Substance: DULOXETINE
     Route: 065
  6. LIDOCAINE. [Concomitant]
     Active Substance: LIDOCAINE
     Route: 065
  7. PANTOPRAZOLE [Concomitant]
     Active Substance: PANTOPRAZOLE
     Route: 065
  8. MIDODRINE [Concomitant]
     Active Substance: MIDODRINE
     Route: 065
  9. CLARIBIN [Concomitant]
     Route: 065
  10. MECLIXINE [Concomitant]
     Route: 065
  11. REGIAN [Concomitant]
     Route: 065
  12. GABAPENTIN. [Concomitant]
     Active Substance: GABAPENTIN
     Route: 065
  13. TYSABRI [Suspect]
     Active Substance: NATALIZUMAB
     Indication: PRODUCT USED FOR UNKNOWN INDICATION
     Route: 065
  14. VITAMIN B2 [Concomitant]
     Active Substance: RIBOFLAVIN
     Route: 065
  15. KLONOPIN [Concomitant]
     Active Substance: CLONAZEPAM
     Route: 065
  16. SYNTHROID [Concomitant]
     Active Substance: LEVOTHYROXINE SODIUM
     Route: 065
  17. AFO LEFT [Concomitant]
     Route: 065
  18. LIPITOR [Concomitant]
     Active Substance: ATORVASTATIN CALCIUM
     Route: 065
  19. MAGNESSIUM OCIDE [Concomitant]
     Route: 065

REACTIONS (1)
  - Multiple sclerosis [Unknown]
